FAERS Safety Report 20448383 (Version 15)
Quarter: 2023Q2

REPORT INFORMATION
  Report Type: Report from Study
  Country: TR (occurrence: TR)
  Receive Date: 20220209
  Receipt Date: 20230623
  Transmission Date: 20230721
  Serious: Yes (Life-Threatening, Hospitalization)
  Sender: FDA-Public Use
  Company Number: TR-NOVARTISPH-NVSC2022TR023735

PATIENT
  Age: 69 Year
  Sex: Female
  Weight: 64 kg

DRUGS (31)
  1. PIQRAY [Suspect]
     Active Substance: ALPELISIB
     Indication: Ovarian cancer
     Dosage: 200 MG, QD (DAILY)
     Route: 048
     Dates: start: 20220126
  2. OLAPARIB [Suspect]
     Active Substance: OLAPARIB
     Indication: Ovarian cancer
     Dosage: 400 MG 2 TIMES PER DAY
     Route: 048
     Dates: start: 20220126
  3. CIPROFLOXACIN HYDROCHLORIDE [Concomitant]
     Active Substance: CIPROFLOXACIN HYDROCHLORIDE
     Indication: Depression
     Dosage: UNK
     Route: 065
     Dates: start: 2015, end: 20220226
  4. AMITRIPTYLINE HYDROCHLORIDE [Concomitant]
     Active Substance: AMITRIPTYLINE HYDROCHLORIDE
     Indication: Depression
     Dosage: UNK
     Route: 065
     Dates: start: 2017, end: 20220204
  5. EUTHYROX [Concomitant]
     Active Substance: LEVOTHYROXINE SODIUM
     Indication: Hypothyroidism
     Dosage: UNK
     Route: 065
     Dates: start: 201705
  6. METOPROLOL SUCCINATE [Concomitant]
     Active Substance: METOPROLOL SUCCINATE
     Indication: Arrhythmia
     Dosage: UNK
     Route: 065
     Dates: start: 201707, end: 20220303
  7. HYDROCHLOROTHIAZIDE\VALSARTAN [Concomitant]
     Active Substance: HYDROCHLOROTHIAZIDE\VALSARTAN
     Indication: Hypertension
     Dosage: UNK
     Route: 065
     Dates: start: 202111, end: 20220204
  8. NORVASC [Concomitant]
     Active Substance: AMLODIPINE BESYLATE
     Indication: Hypertension
     Dosage: UNK
     Route: 065
     Dates: start: 202111, end: 20220303
  9. ENEMA (SODIUM PHOSPHATE, DIBASIC\SODIUM PHOSPHATE, MONOBASIC) [Concomitant]
     Active Substance: SODIUM PHOSPHATE, DIBASIC\SODIUM PHOSPHATE, MONOBASIC
     Indication: Constipation
     Dosage: UNK
     Route: 065
     Dates: start: 20220120, end: 20220120
  10. LEVOFLOXACIN [Concomitant]
     Active Substance: LEVOFLOXACIN
     Indication: C-reactive protein increased
     Dosage: UNK
     Route: 065
     Dates: start: 20220120, end: 20220125
  11. LEVOFLOXACIN [Concomitant]
     Active Substance: LEVOFLOXACIN
     Dosage: UNK
     Route: 065
     Dates: start: 20220202, end: 20220203
  12. LEVOFLOXACIN [Concomitant]
     Active Substance: LEVOFLOXACIN
     Dosage: UNK
     Route: 065
     Dates: start: 20220203, end: 20220208
  13. PAROL [Concomitant]
     Active Substance: ACETAMINOPHEN
     Indication: Facial bones fracture
     Dosage: UNK
     Route: 065
     Dates: start: 20220202
  14. PULMICORT TURBUHALER [Concomitant]
     Active Substance: BUDESONIDE
     Indication: Pleural effusion
     Dosage: UNK
     Route: 065
     Dates: start: 20220202
  15. ALBUMIN HUMAN [Concomitant]
     Active Substance: ALBUMIN HUMAN
     Indication: Hypoalbuminaemia
     Dosage: UNK
     Route: 065
     Dates: start: 20220203, end: 20220220
  16. ASIST [Concomitant]
     Indication: Pleural effusion
     Dosage: UNK
     Route: 065
     Dates: start: 20220203
  17. CEFTRIAXONE [Concomitant]
     Active Substance: CEFTRIAXONE
     Indication: C-reactive protein increased
     Dosage: UNK
     Route: 065
     Dates: start: 20220203, end: 20220208
  18. COMBIVENT [Concomitant]
     Active Substance: ALBUTEROL SULFATE\IPRATROPIUM BROMIDE
     Indication: Pleural effusion
     Dosage: UNK
     Route: 065
     Dates: start: 20220203
  19. TRAMADOL HYDROCHLORIDE [Concomitant]
     Active Substance: TRAMADOL HYDROCHLORIDE
     Indication: Abdominal pain
     Dosage: UNK
     Route: 065
     Dates: start: 20220203
  20. DEKSTRAN [Concomitant]
     Indication: Hyperkalaemia
     Dosage: UNK
     Route: 065
     Dates: start: 20220203, end: 20220203
  21. DUPHALAC [Concomitant]
     Active Substance: LACTULOSE
     Indication: Constipation
     Dosage: UNK
     Route: 065
     Dates: start: 20220203, end: 20220203
  22. PANTOPRAZOLE SODIUM [Concomitant]
     Active Substance: PANTOPRAZOLE SODIUM
     Indication: Pain prophylaxis
     Dosage: UNK
     Route: 065
     Dates: start: 20220203, end: 20220222
  23. MYCOSTATIN [Concomitant]
     Active Substance: NYSTATIN
     Indication: Dysphagia
     Dosage: UNK
     Route: 065
     Dates: start: 20220204
  24. REDEPRA [Concomitant]
     Indication: Depression
     Dosage: UNK
     Route: 065
     Dates: start: 20220204, end: 20220226
  25. GLIFIX [Concomitant]
     Indication: Hyperglycaemia
     Dosage: UNK
     Route: 065
     Dates: start: 20220208, end: 20220213
  26. PIPERACILLIN SODIUM\TAZOBACTAM SODIUM [Concomitant]
     Active Substance: PIPERACILLIN SODIUM\TAZOBACTAM SODIUM
     Indication: C-reactive protein increased
     Dosage: UNK
     Route: 065
     Dates: start: 20220209, end: 20220221
  27. REFLOR [Concomitant]
     Indication: Diarrhoea
     Dosage: UNK
     Route: 065
     Dates: start: 20220210, end: 20220302
  28. PROZAC [Concomitant]
     Active Substance: FLUOXETINE HYDROCHLORIDE
     Indication: Depression
     Dosage: UNK
     Route: 065
     Dates: start: 20220212
  29. LOPERMIDE [Concomitant]
     Indication: Diarrhoea
     Dosage: UNK
     Route: 065
     Dates: start: 20220226, end: 20220303
  30. ENOXAPARIN SODIUM [Concomitant]
     Active Substance: ENOXAPARIN SODIUM
     Indication: Prophylaxis
     Dosage: UNK
     Route: 065
     Dates: start: 20220227, end: 20220303
  31. OLFREX [Concomitant]
     Indication: Depression
     Dosage: UNK
     Route: 065
     Dates: start: 20220227, end: 20220303

REACTIONS (6)
  - Fatigue [Not Recovered/Not Resolved]
  - Nausea [Not Recovered/Not Resolved]
  - Hypotension [Not Recovered/Not Resolved]
  - Pneumonia aspiration [Not Recovered/Not Resolved]
  - Ascites [Recovered/Resolved]
  - Renal failure [Not Recovered/Not Resolved]

NARRATIVE: CASE EVENT DATE: 20220126
